FAERS Safety Report 25407042 (Version 1)
Quarter: 2025Q2

REPORT INFORMATION
  Report Type: Report from Study
  Country: US (occurrence: US)
  Receive Date: 20250606
  Receipt Date: 20250606
  Transmission Date: 20250716
  Serious: Yes (Hospitalization, Other)
  Sender: TAKEDA
  Company Number: US-TAKEDA-2025TUS047789

PATIENT
  Sex: Male
  Weight: 97.052 kg

DRUGS (6)
  1. FRUQUINTINIB [Suspect]
     Active Substance: FRUQUINTINIB
     Indication: Colon cancer
  2. FRUQUINTINIB [Suspect]
     Active Substance: FRUQUINTINIB
  3. SILDENAFIL [Concomitant]
     Active Substance: SILDENAFIL
  4. METOPROLOL [Concomitant]
     Active Substance: METOPROLOL
  5. PREDNISONE [Concomitant]
     Active Substance: PREDNISONE
  6. LOSARTAN [Concomitant]
     Active Substance: LOSARTAN

REACTIONS (2)
  - Pulmonary hypertension [Unknown]
  - Blood pressure increased [Unknown]
